FAERS Safety Report 24157036 (Version 1)
Quarter: 2024Q3

REPORT INFORMATION
  Report Type: Spontaneous
  Country: US (occurrence: US)
  Receive Date: 20240731
  Receipt Date: 20240731
  Transmission Date: 20241016
  Serious: No
  Sender: PFIZER
  Company Number: US-PFIZER INC-PV202400097589

PATIENT
  Age: 47 Year
  Sex: Female

DRUGS (2)
  1. FLUCONAZOLE [Suspect]
     Active Substance: FLUCONAZOLE
  2. SILVER SULFADIAZENE [Suspect]
     Active Substance: SILVER SULFADIAZINE

REACTIONS (1)
  - Drug hypersensitivity [Unknown]
